FAERS Safety Report 10089581 (Version 2)
Quarter: 2014Q2

REPORT INFORMATION
  Report Type: Spontaneous
  Country: BR (occurrence: BR)
  Receive Date: 20140421
  Receipt Date: 20140421
  Transmission Date: 20141212
  Serious: Yes (Other)
  Sender: FDA-Public Use
  Company Number: BR-SANOFI-AVENTIS-2013SA069578

PATIENT
  Age: 26 Year
  Sex: Female
  Weight: 54 kg

DRUGS (4)
  1. CLEXANE [Suspect]
     Indication: HYPERCOAGULATION
     Dosage: STRENGTH: 40MG
     Route: 065
     Dates: start: 20130618
  2. FOLIC ACID [Concomitant]
     Indication: VITAMIN SUPPLEMENTATION
     Dosage: STRENGTH: 5MG
     Route: 048
     Dates: start: 20130618
  3. MATERNA [Concomitant]
  4. OMEGA 3 [Concomitant]

REACTIONS (2)
  - Stillbirth [Unknown]
  - Exposure during pregnancy [Unknown]
